FAERS Safety Report 7742617-2 (Version None)
Quarter: 2011Q3

REPORT INFORMATION
  Report Type: 
  Country: None (occurrence: None)
  Receive Date: 20110912
  Receipt Date: 20110908
  Transmission Date: 20111222
  Serious: Yes (Death, Hospitalization)
  Sender: FDA-Public Use
  Company Number: PHHY2011BR80092

PATIENT
  Sex: Male
  Weight: 75 kg

DRUGS (7)
  1. WARFARIN SODIUM [Concomitant]
     Indication: BLOOD DISORDER
     Dosage: 1 DF, QD
     Route: 048
  2. EXELON [Suspect]
     Indication: DEMENTIA ALZHEIMER'S TYPE
     Dosage: 1 DF, BID
     Route: 048
  3. ENALAPRIL MALEATE [Concomitant]
     Indication: HYPERTENSION
     Dosage: 1 DF, BID
     Route: 048
  4. SIMVASTATIN [Concomitant]
     Indication: BLOOD CHOLESTEROL INCREASED
     Dosage: 1 DF, QHS
     Route: 048
  5. LUFTAL [Concomitant]
     Indication: FLATULENCE
     Dosage: UNK UKN, UNK
  6. SEROQUEL [Suspect]
     Indication: DEMENTIA ALZHEIMER'S TYPE
     Dosage: 600 MG, TID
     Route: 048
  7. PROPAFENONE HCL [Concomitant]
     Indication: ARRHYTHMIA
     Dosage: 0.5 DF, BID
     Route: 048

REACTIONS (7)
  - DYSPHAGIA [None]
  - FLATULENCE [None]
  - WRONG TECHNIQUE IN DRUG USAGE PROCESS [None]
  - MYOCARDIAL INFARCTION [None]
  - BRONCHOPNEUMONIA [None]
  - CONSTIPATION [None]
  - HEMIPLEGIA [None]
